FAERS Safety Report 20443871 (Version 3)
Quarter: 2025Q1

REPORT INFORMATION
  Report Type: Spontaneous
  Country: US (occurrence: US)
  Receive Date: 20220208
  Receipt Date: 20250111
  Transmission Date: 20250408
  Serious: No
  Sender: SANOFI AVENTIS
  Company Number: US-SA-SAC20220202000972

PATIENT
  Sex: Female
  Weight: 78.18 kg

DRUGS (15)
  1. DUPIXENT [Suspect]
     Active Substance: DUPILUMAB
     Indication: Dermatitis atopic
     Dosage: 300 MG, QOW
     Route: 058
     Dates: start: 2020
  2. FLUOCINONIDE [Concomitant]
     Active Substance: FLUOCINONIDE
     Indication: Pruritus
  3. LOSARTAN POTASSIUM [Concomitant]
     Active Substance: LOSARTAN POTASSIUM
     Indication: Hypertension
  4. ARMOUR THYROID [Concomitant]
     Active Substance: THYROID, PORCINE
  5. DEXTROAMPHETAMINE [Concomitant]
     Active Substance: DEXTROAMPHETAMINE
  6. BRILINTA [Concomitant]
     Active Substance: TICAGRELOR
  7. ADBRY [Concomitant]
     Active Substance: TRALOKINUMAB-LDRM
  8. ADDERALL [Concomitant]
     Active Substance: AMPHETAMINE ASPARTATE\AMPHETAMINE SULFATE\DEXTROAMPHETAMINE SACCHARATE\DEXTROAMPHETAMINE SULFATE
  9. ASPIRIN [Concomitant]
     Active Substance: ASPIRIN
  10. FLUVOXAMINE MALEATE [Concomitant]
     Active Substance: FLUVOXAMINE MALEATE
  11. AMLODIPINE BESYLATE [Concomitant]
     Active Substance: AMLODIPINE BESYLATE
  12. VITAMIN B12 [Concomitant]
     Active Substance: CYANOCOBALAMIN
  13. FLUOCINONIDE [Concomitant]
     Active Substance: FLUOCINONIDE
  14. LORAZEPAM [Concomitant]
     Active Substance: LORAZEPAM
  15. ATENOLOL [Concomitant]
     Active Substance: ATENOLOL

REACTIONS (10)
  - Sleep disorder [Unknown]
  - Dry skin [Unknown]
  - Drug ineffective [Unknown]
  - Vitreous floaters [Not Recovered/Not Resolved]
  - Eye swelling [Unknown]
  - Ocular hyperaemia [Unknown]
  - Pruritus [Unknown]
  - Blister [Unknown]
  - Product dose omission issue [Unknown]
  - Eye irritation [Not Recovered/Not Resolved]
